FAERS Safety Report 5051301-8 (Version None)
Quarter: 2006Q3

REPORT INFORMATION
  Report Type: 
  Country: None (occurrence: None)
  Receive Date: 20060710
  Receipt Date: 20060628
  Transmission Date: 20061208
  Serious: Yes (Hospitalization)
  Sender: FDA-Public Use
  Company Number: B0430068A

PATIENT
  Sex: Male

DRUGS (3)
  1. PAXIL [Suspect]
  2. LINEZOLID [Suspect]
  3. TRAMADOL HCL [Suspect]

REACTIONS (3)
  - CHILLS [None]
  - DRUG INTERACTION [None]
  - DRUG TOXICITY [None]
